FAERS Safety Report 10728177 (Version 1)
Quarter: 2015Q1

REPORT INFORMATION
  Report Type: Spontaneous
  Country: US (occurrence: US)
  Receive Date: 20150121
  Receipt Date: 20150121
  Transmission Date: 20150721
  Serious: Yes (Hospitalization, Other)
  Sender: FDA-Public Use
  Company Number: US-B.I. PHARMACEUTICALS,INC./RIDGEFIELD-2015-BI-02471BP

PATIENT
  Age: 92 Year
  Sex: Female
  Weight: 46.72 kg

DRUGS (2)
  1. AZITHROMYCIN [Concomitant]
     Active Substance: AZITHROMYCIN ANHYDROUS
     Indication: PRODUCT USED FOR UNKNOWN INDICATION
     Route: 065
  2. SPIRIVA [Suspect]
     Active Substance: TIOTROPIUM BROMIDE MONOHYDRATE
     Indication: PRODUCT USED FOR UNKNOWN INDICATION
     Dosage: 18 MCG
     Route: 055
     Dates: start: 2004

REACTIONS (11)
  - Dyspnoea [Recovered/Resolved]
  - Diarrhoea [Recovered/Resolved]
  - Cardiac failure congestive [Not Recovered/Not Resolved]
  - Pneumonia [Recovered/Resolved]
  - Abnormal weight gain [Unknown]
  - Abnormal loss of weight [Recovered/Resolved]
  - Abdominal pain upper [Recovered/Resolved]
  - Heart valve incompetence [Not Recovered/Not Resolved]
  - Infection [Not Recovered/Not Resolved]
  - Nausea [Recovered/Resolved]
  - Fatigue [Unknown]

NARRATIVE: CASE EVENT DATE: 2009
